FAERS Safety Report 5108023-4 (Version None)
Quarter: 2006Q3

REPORT INFORMATION
  Report Type: 
  Country: None (occurrence: None)
  Receive Date: 20060915
  Receipt Date: 20060907
  Transmission Date: 20061208
  Serious: Yes (Hospitalization)
  Sender: FDA-Public Use
  Company Number: 2006109514

PATIENT

DRUGS (3)
  1. BEXTRA [Suspect]
     Indication: DRUG USE FOR UNKNOWN INDICATION
     Dates: start: 20020501, end: 20040601
  2. CELEBREX [Suspect]
     Indication: DRUG USE FOR UNKNOWN INDICATION
     Dates: start: 20010301, end: 20020401
  3. VIOXX [Suspect]
     Indication: DRUG USE FOR UNKNOWN INDICATION
     Dates: start: 20020501, end: 20040601

REACTIONS (1)
  - CEREBROVASCULAR ACCIDENT [None]
